FAERS Safety Report 6787671-X (Version None)
Quarter: 2010Q2

REPORT INFORMATION
  Report Type: 
  Country: None (occurrence: None)
  Receive Date: 20100621
  Receipt Date: 20100611
  Transmission Date: 20101027
  Serious: Yes (Life-Threatening)
  Sender: FDA-Public Use
  Company Number: 616454

PATIENT
  Age: 57 Year
  Sex: Male

DRUGS (6)
  1. FENTANYL CITRATE [Suspect]
  2. MIDAZOLAM HCL [Suspect]
  3. ONDANSETRON [Suspect]
  4. PROPOFOL [Suspect]
  5. DICLOFENAC SODIUM [Suspect]
  6. DICLOFENAC SODIUM [Suspect]
     Dosage: 75MG MILLIGRAMS, INTRAVENOUS
     Route: 042
     Dates: start: 20100517

REACTIONS (1)
  - ANAPHYLACTIC REACTION [None]
